FAERS Safety Report 7068313 (Version 2)
Quarter: 2013Q4

REPORT INFORMATION
  Report Type: Spontaneous
  Country: US (occurrence: None)
  Receive Date: 20090724
  Receipt Date: 20131226
  Transmission Date: 20140711
  Serious: Yes (Other)
  Sender: FDA-Public Use
  Company Number: 2009S1005628

PATIENT
  Age: 56 Year
  Sex: Female
  Weight: 63.5 kg

DRUGS (4)
  1. FLEET PHOSPHO-SODA [Suspect]
     Indication: PRODUCT USED FOR UNKNOWN INDICATION
     Dates: start: 2006, end: 2007
  2. HYZAAR (HYDROCHLOROTHIAZIDE, LOSARTAN POTASSIUM) [Concomitant]
  3. WELLBUTRIN (BUPROPION HYDROCHLORIDE) [Concomitant]
  4. ZETIA (EZETIMIBE) [Concomitant]

REACTIONS (1)
  - Renal failure [None]
